FAERS Safety Report 4412433-8 (Version None)
Quarter: 2004Q2

REPORT INFORMATION
  Report Type: 
  Country: None (occurrence: None)
  Receive Date: 20040630
  Receipt Date: 20040415
  Transmission Date: 20050107
  Serious: No
  Sender: FDA-Public Use
  Company Number: 04P-163-0256433-00

PATIENT
  Age: 73 Year
  Sex: Female
  Weight: 67.1324 kg

DRUGS (11)
  1. HUMIRA [Suspect]
     Indication: RHEUMATOID ARTHRITIS
     Dosage: 40 MG, 1 IN 2 WK, SUBCUTANEOUS
     Route: 058
     Dates: start: 20040303
  2. PREDNISONE [Concomitant]
  3. ROFECOXIB [Concomitant]
  4. LEFLUNOMIDE [Concomitant]
  5. OMEPRAZOLE [Concomitant]
  6. ALENDRONATE SODIUM [Concomitant]
  7. CALCIUM WITH VITAMIN D [Concomitant]
  8. CENTRUM [Concomitant]
  9. GABAPENTIN [Concomitant]
  10. ANCOVERT [Concomitant]
  11. PARACETAMOL [Concomitant]

REACTIONS (6)
  - ARTHRALGIA [None]
  - BLOOD PRESSURE INCREASED [None]
  - GENERALISED ERYTHEMA [None]
  - INFLUENZA LIKE ILLNESS [None]
  - MYALGIA [None]
  - TREMOR [None]
